FAERS Safety Report 26113809 (Version 2)
Quarter: 2025Q4

REPORT INFORMATION
  Report Type: Spontaneous
  Country: EU (occurrence: EU)
  Receive Date: 20251202
  Receipt Date: 20251203
  Transmission Date: 20260118
  Serious: Yes (Other)
  Sender: INCYTE
  Company Number: EU-002147023-NVSC2025GR180402

PATIENT
  Age: 75 Year

DRUGS (1)
  1. RUXOLITINIB [Suspect]
     Active Substance: RUXOLITINIB
     Indication: Myelofibrosis
     Dosage: 30 MG, Q24H (30 MG/24H)
     Route: 065

REACTIONS (1)
  - Bone tuberculosis [Recovering/Resolving]
